FAERS Safety Report 20435698 (Version 1)
Quarter: 2022Q1

REPORT INFORMATION
  Report Type: Spontaneous
  Country: US (occurrence: US)
  Receive Date: 20220207
  Receipt Date: 20220207
  Transmission Date: 20220423
  Serious: Yes (Other)
  Sender: FDA-Public Use
  Company Number: US-NOVOPROD-887016

PATIENT
  Sex: Female

DRUGS (2)
  1. TRESIBA [Suspect]
     Active Substance: INSULIN DEGLUDEC
     Indication: Product used for unknown indication
     Dosage: UNK
     Route: 058
  2. FIASP [Suspect]
     Active Substance: INSULIN ASPART
     Indication: Product used for unknown indication
     Dosage: UNK
     Route: 058

REACTIONS (8)
  - Osteomyelitis [Unknown]
  - Cerebrovascular accident [Unknown]
  - Pruritus [Unknown]
  - Balance disorder [Unknown]
  - Vision blurred [Unknown]
  - Myalgia [Unknown]
  - Drug hypersensitivity [Unknown]
  - Blood glucose increased [Unknown]
